FAERS Safety Report 4972157-5 (Version None)
Quarter: 2006Q2

REPORT INFORMATION
  Report Type: 
  Country: None (occurrence: None)
  Receive Date: 20060412
  Receipt Date: 20060412
  Transmission Date: 20061013
  Serious: No
  Sender: FDA-Public Use
  Company Number: None

PATIENT
  Age: 79 Year
  Sex: Female

DRUGS (1)
  1. ATROVENT HFA [Suspect]
     Indication: CHRONIC OBSTRUCTIVE PULMONARY DISEASE
     Dosage: USE 2 INHALATIONS  ORALLY 4 TIMES DAILY
     Dates: start: 20060301, end: 20060319

REACTIONS (2)
  - DYSGEUSIA [None]
  - MALAISE [None]
